FAERS Safety Report 17727228 (Version 5)
Quarter: 2020Q3

REPORT INFORMATION
  Report Type: Spontaneous
  Country: US (occurrence: US)
  Receive Date: 20200430
  Receipt Date: 20200925
  Transmission Date: 20201102
  Serious: Yes (Other)
  Sender: FDA-Public Use
  Company Number: US-GILEAD-2020-0460881

PATIENT
  Age: 65 Year
  Sex: Female
  Weight: 61.22 kg

DRUGS (25)
  1. ALPRAZOLAM. [Concomitant]
     Active Substance: ALPRAZOLAM
  2. VICODIN [Concomitant]
     Active Substance: ACETAMINOPHEN\HYDROCODONE BITARTRATE
  3. ACETAMINOPHEN. [Concomitant]
     Active Substance: ACETAMINOPHEN
  4. TIVICAY [Concomitant]
     Active Substance: DOLUTEGRAVIR SODIUM
  5. MORPHINE [Concomitant]
     Active Substance: MORPHINE
  6. VICKS NYQUIL [Concomitant]
     Active Substance: ACETAMINOPHEN\DEXTROMETHORPHAN HYDROBROMIDE\DOXYLAMINE SUCCINATE
  7. DIMETAPP [BROMPHENIRAMINE MALEATE;PHENYLEPHRINE HYDROCHLORIDE] [Concomitant]
  8. ATRIPLA [Suspect]
     Active Substance: EFAVIRENZ\EMTRICITABINE\TENOFOVIR DISOPROXIL FUMARATE
     Dosage: UNK
     Route: 048
     Dates: start: 20140317, end: 20151021
  9. EMTRIVA [Concomitant]
     Active Substance: EMTRICITABINE
     Dosage: UNK
  10. GADOBUTROL. [Concomitant]
     Active Substance: GADOBUTROL
  11. ASPIRIN [ACETYLSALICYLIC ACID] [Concomitant]
     Active Substance: ASPIRIN
  12. PREZCOBIX [Concomitant]
     Active Substance: COBICISTAT\DARUNAVIR ETHANOLATE
  13. RETROVIR [Concomitant]
     Active Substance: ZIDOVUDINE
  14. SUSTIVA [Concomitant]
     Active Substance: EFAVIRENZ
  15. VIRACEPT [Concomitant]
     Active Substance: NELFINAVIR MESYLATE
  16. ALEVE [Concomitant]
     Active Substance: NAPROXEN SODIUM
  17. ROBITUSSIN [DEXTROMETHORPHAN HYDROBROMIDE;ETHANOL;GUAIFENESIN] [Concomitant]
  18. TETRACYCLINE [Concomitant]
     Active Substance: TETRACYCLINE
  19. LOVENOX [Concomitant]
     Active Substance: ENOXAPARIN SODIUM
  20. COMBIVIR [Concomitant]
     Active Substance: LAMIVUDINE\ZIDOVUDINE
  21. FUZEON [Concomitant]
     Active Substance: ENFUVIRTIDE
  22. IBUPROFEN. [Concomitant]
     Active Substance: IBUPROFEN
  23. TRUVADA [Suspect]
     Active Substance: EMTRICITABINE\TENOFOVIR DISOPROXIL FUMARATE
     Indication: HIV INFECTION
     Dosage: UNK
     Route: 048
     Dates: start: 20150904, end: 20151021
  24. ATRIPLA [Suspect]
     Active Substance: EFAVIRENZ\EMTRICITABINE\TENOFOVIR DISOPROXIL FUMARATE
     Indication: HIV INFECTION
     Dosage: UNK
     Route: 048
     Dates: start: 201403, end: 201510
  25. AMOXICILLIN. [Concomitant]
     Active Substance: AMOXICILLIN

REACTIONS (8)
  - Fanconi syndrome acquired [Not Recovered/Not Resolved]
  - Renal failure [Not Recovered/Not Resolved]
  - Emotional distress [Unknown]
  - Acute kidney injury [Recovered/Resolved]
  - Economic problem [Unknown]
  - Blood creatinine increased [Unknown]
  - Pain [Unknown]
  - Chronic kidney disease [Not Recovered/Not Resolved]

NARRATIVE: CASE EVENT DATE: 20150102
